FAERS Safety Report 6736510-1 (Version None)
Quarter: 2010Q2

REPORT INFORMATION
  Report Type: 
  Country: None (occurrence: None)
  Receive Date: 20100521
  Receipt Date: 20100517
  Transmission Date: 20101027
  Serious: Yes (Hospitalization, Other)
  Sender: FDA-Public Use
  Company Number: BR-BRISTOL-MYERS SQUIBB COMPANY-15112816

PATIENT
  Age: 40 Year
  Sex: Female

DRUGS (1)
  1. HYDREA [Suspect]
     Indication: LEUKAEMIA
     Dosage: DOSE INCREASED INTO 5G,THEN 2G IS MAINTAINED
     Dates: start: 20100101

REACTIONS (5)
  - BLOOD URIC ACID INCREASED [None]
  - DRY SKIN [None]
  - INCREASED APPETITE [None]
  - OVERDOSE [None]
  - PAIN [None]
